FAERS Safety Report 15306705 (Version 1)
Quarter: 2018Q3

REPORT INFORMATION
  Report Type: Report from Study
  Country: None (occurrence: US)
  Receive Date: 20180822
  Receipt Date: 20180822
  Transmission Date: 20181010
  Serious: No
  Sender: FDA-Public Use
  Company Number: US-BIOVITRUM-2018US0119

PATIENT
  Age: 23 Year
  Sex: Female

DRUGS (1)
  1. ORFADIN [Suspect]
     Active Substance: NITISINONE
     Indication: TYROSINAEMIA
     Dosage: 3 DOSAGE FORMS IN THE MORNING?2 DOSAGE FORMS IN THE EVENING
     Route: 048
     Dates: start: 20140502

REACTIONS (3)
  - Cough [Unknown]
  - Respiratory tract congestion [Unknown]
  - Oropharyngeal pain [Unknown]

NARRATIVE: CASE EVENT DATE: 20180206
